FAERS Safety Report 5783005-8 (Version None)
Quarter: 2008Q2

REPORT INFORMATION
  Report Type: 
  Country: None (occurrence: None)
  Receive Date: 20080619
  Receipt Date: 20080619
  Transmission Date: 20081010
  Serious: Yes (Hospitalization)
  Sender: FDA-Public Use
  Company Number: None

PATIENT
  Age: 65 Year
  Sex: Male

DRUGS (8)
  1. TEMODAR [Suspect]
     Indication: GLIOBLASTOMA
     Dosage: 3900MG PO X 5 DAYS Q28
     Route: 048
     Dates: start: 20080430
  2. TOPOTECAN 1.75MG/M2 ON DAYS 2 - 6 OF 28 DAY CYCLE [Suspect]
     Indication: GLIOBLASTOMA
     Dosage: 3.5 MG PO X 5 DAYS Q28
     Route: 048
     Dates: start: 20080501
  3. GLYBURIDE [Concomitant]
  4. DILANTIN [Concomitant]
  5. LISINOPRIL AND HYDROCHLOROTHIAZIDE [Concomitant]
  6. METFORMIN HCL [Concomitant]
  7. METOPROLOL SUCCINATE [Concomitant]
  8. SIMVASTATIN [Concomitant]

REACTIONS (1)
  - MENTAL STATUS CHANGES [None]
